FAERS Safety Report 7124018-3 (Version None)
Quarter: 2010Q4

REPORT INFORMATION
  Report Type: 
  Country: None (occurrence: None)
  Receive Date: 20101126
  Receipt Date: 20101115
  Transmission Date: 20110411
  Serious: No
  Sender: FDA-Public Use
  Company Number: US-PFIZER INC-2010151711

PATIENT
  Age: 24 Year
  Weight: 97.506 kg

DRUGS (2)
  1. DEPO-PROVERA [Suspect]
     Dosage: UNK
     Route: 030
     Dates: start: 20100201, end: 20101001
  2. LEVONORGESTREL [Suspect]
     Indication: ORAL CONTRACEPTION
     Dosage: 75 MG, 1ST TAB WITHIN 72H OF SEX, 2ND TAB 12H LATER
     Route: 048
     Dates: start: 20101102, end: 20101103

REACTIONS (2)
  - ABDOMINAL PAIN LOWER [None]
  - METRORRHAGIA [None]
